FAERS Safety Report 6992426-7 (Version None)
Quarter: 2010Q3

REPORT INFORMATION
  Report Type: 
  Country: None (occurrence: None)
  Receive Date: 20100917
  Receipt Date: 20100910
  Transmission Date: 20110219
  Serious: Yes (Other)
  Sender: FDA-Public Use
  Company Number: US-NAPPMUNDI-USA-2010-0046877

PATIENT
  Sex: Male

DRUGS (1)
  1. OXYCONTIN [Suspect]
     Indication: PAIN
     Dosage: 80 MG, SEE TEXT

REACTIONS (5)
  - DIARRHOEA [None]
  - PAIN [None]
  - PHARYNGEAL OEDEMA [None]
  - PRURITUS [None]
  - VOMITING [None]
